FAERS Safety Report 9224838 (Version 1)
Quarter: 2013Q2

REPORT INFORMATION
  Report Type: Spontaneous
  Country: US (occurrence: US)
  Receive Date: 20130411
  Receipt Date: 20130411
  Transmission Date: 20140414
  Serious: Yes (Hospitalization)
  Sender: FDA-Public Use
  Company Number: US-SANOFI-AVENTIS-2013SA036748

PATIENT
  Age: 51 Year
  Sex: Female

DRUGS (1)
  1. AUBAGIO [Suspect]
     Indication: MULTIPLE SCLEROSIS
     Route: 048
     Dates: start: 20130223

REACTIONS (6)
  - Mass [Unknown]
  - Cyst [Unknown]
  - Oophorectomy [Unknown]
  - Hospitalisation [Unknown]
  - Blood cortisol decreased [Unknown]
  - Alopecia [Unknown]
